FAERS Safety Report 7887502-0 (Version None)
Quarter: 2011Q4

REPORT INFORMATION
  Report Type: 
  Country: None (occurrence: None)
  Receive Date: 20111103
  Receipt Date: 20111025
  Transmission Date: 20120403
  Serious: Yes (Other)
  Sender: FDA-Public Use
  Company Number: US-BIOGENIDEC-2011BI014793

PATIENT
  Sex: Female

DRUGS (5)
  1. TOPAMAX [Concomitant]
     Indication: FIBROMYALGIA
     Route: 048
     Dates: start: 20100801
  2. HYDROCHLOROTHIAZIDE [Concomitant]
     Indication: RENAL CELL CARCINOMA
     Route: 048
     Dates: start: 20010101
  3. SYNTHROID [Concomitant]
     Indication: THYROID HORMONE REPLACEMENT THERAPY
     Route: 048
     Dates: start: 19940101
  4. FLUOXETINE HCL [Concomitant]
     Indication: DEPRESSION
     Route: 048
     Dates: start: 20100801
  5. TYSABRI [Suspect]
     Indication: MULTIPLE SCLEROSIS
     Route: 042
     Dates: start: 20070402

REACTIONS (1)
  - RENAL FAILURE [None]
